FAERS Safety Report 7375025-7 (Version None)
Quarter: 2011Q1

REPORT INFORMATION
  Report Type: 
  Country: None (occurrence: None)
  Receive Date: 20110325
  Receipt Date: 20110316
  Transmission Date: 20110831
  Serious: Yes (Hospitalization, Other)
  Sender: FDA-Public Use
  Company Number: US-MYLANLABS-2011S1002168

PATIENT
  Age: 33 Year
  Sex: Male
  Weight: 132 kg

DRUGS (8)
  1. RISPERIDONE [Suspect]
     Route: 048
     Dates: end: 20110131
  2. BENZTROPINE MESYLATE [Concomitant]
  3. PROPRANOLOL [Concomitant]
  4. PAROXETINE TABLETS USP [Suspect]
     Route: 048
  5. GEMFIBROZIL [Concomitant]
  6. CLOZAPINE [Suspect]
     Indication: SCHIZOPHRENIA
     Route: 048
  7. CLOZAPINE [Suspect]
     Route: 048
  8. DOCUSATE [Concomitant]

REACTIONS (2)
  - DRUG INTERACTION [None]
  - GRAND MAL CONVULSION [None]
